FAERS Safety Report 7612119-2 (Version None)
Quarter: 2011Q3

REPORT INFORMATION
  Report Type: 
  Country: None (occurrence: None)
  Receive Date: 20110715
  Receipt Date: 20110713
  Transmission Date: 20111222
  Serious: Yes (Hospitalization, Other)
  Sender: FDA-Public Use
  Company Number: US-ELI_LILLY_AND_COMPANY-US201001004759

PATIENT
  Sex: Female
  Weight: 90.703 kg

DRUGS (8)
  1. TRICOR [Concomitant]
  2. ASPIRIN [Concomitant]
     Dosage: 81 MG, UNK
  3. LEXAPRO [Concomitant]
     Dates: start: 20051201
  4. BENICAR [Concomitant]
  5. BENICAR HCT [Concomitant]
  6. VITAMIN TAB [Concomitant]
  7. BYETTA [Suspect]
     Dosage: 10 UG, UNKNOWN
     Route: 065
     Dates: start: 20061201, end: 20090206
  8. METFORMIN HCL [Concomitant]
     Dates: start: 20031201

REACTIONS (7)
  - DEHYDRATION [None]
  - CHOLELITHIASIS [None]
  - PANCREATITIS ACUTE [None]
  - PANCREATITIS CHRONIC [None]
  - PANCREATITIS RELAPSING [None]
  - SYNCOPE [None]
  - CHOLECYSTITIS [None]
